FAERS Safety Report 9552167 (Version 1)
Quarter: 2013Q3

REPORT INFORMATION
  Report Type: Spontaneous
  Country: US (occurrence: None)
  Receive Date: 20130724
  Receipt Date: 20130724
  Transmission Date: 20140515
  Serious: Yes (Hospitalization)
  Sender: FDA-Public Use
  Company Number: PHEH2012US014558

PATIENT
  Age: 55 Year
  Sex: Male

DRUGS (2)
  1. GLEEVEC [Suspect]
     Dosage: , ORAL
     Route: 048
  2. CHEMOTHERAPEUTICS (NO INGREDIENTS/SUBSTANCES) [Concomitant]

REACTIONS (2)
  - Pneumonia [None]
  - Nausea [None]
